FAERS Safety Report 10227619 (Version 2)
Quarter: 2014Q2

REPORT INFORMATION
  Report Type: Report from Study
  Country: CN (occurrence: None)
  Receive Date: 20140606
  Receipt Date: 20140617
  Transmission Date: 20141212
  Serious: Yes (Hospitalization)
  Sender: FDA-Public Use
  Company Number: CN-015915

PATIENT
  Age: 32 Year
  Sex: Female

DRUGS (3)
  1. BRAVELLE [Suspect]
     Indication: ASSISTED FERTILISATION
     Route: 058
     Dates: start: 20140414, end: 20140423
  2. DECAPEPTYL /00957902/ [Concomitant]
  3. PROGESTERONE [Concomitant]

REACTIONS (1)
  - Ectopic pregnancy [None]
